FAERS Safety Report 9167339 (Version 2)
Quarter: 2013Q1

REPORT INFORMATION
  Report Type: Spontaneous
  Country: GB (occurrence: None)
  Receive Date: 20130307
  Receipt Date: 20130327
  Transmission Date: 20140127
  Serious: Yes (Hospitalization)
  Sender: FDA-Public Use
  Company Number: 2013000028

PATIENT
  Age: 36 Year
  Sex: Male

DRUGS (5)
  1. ACEON [Suspect]
     Indication: HYPERTENSION
  2. METHYLDOPA [Suspect]
     Indication: HYPERTENSION
  3. NIFEDIPINE [Suspect]
     Indication: HYPERTENSION
  4. ATENOLOL (ATENOLOL) [Suspect]
     Indication: HYPERTENSION
  5. LOSARTAN (LOSARTAN) [Suspect]

REACTIONS (8)
  - Drug ineffective [None]
  - Arrhythmia [None]
  - Left ventricular hypertrophy [None]
  - VIIth nerve paralysis [None]
  - Blood pressure increased [None]
  - Retinopathy hypertensive [None]
  - Renal aneurysm [None]
  - Kidney small [None]
